FAERS Safety Report 12968420 (Version 1)
Quarter: 2016Q4

REPORT INFORMATION
  Report Type: Spontaneous
  Country: US (occurrence: US)
  Receive Date: 20161122
  Receipt Date: 20161122
  Transmission Date: 20170207
  Serious: Yes (Life-Threatening, Hospitalization)
  Sender: FDA-Public Use
  Company Number: None

PATIENT
  Age: 39 Year
  Sex: Female
  Weight: 99 kg

DRUGS (1)
  1. SMS/TMP DS 800 BACTRIM DS SEPTRA (GENERIC) [Suspect]
     Active Substance: SULFAMETHOXAZOLE\TRIMETHOPRIM
     Dosage: ?          OTHER STRENGTH:M;QUANTITY:20 TABLET(S);?
     Route: 048

REACTIONS (12)
  - Oral herpes [None]
  - Skin exfoliation [None]
  - Arthralgia [None]
  - Dyspnoea [None]
  - Diarrhoea [None]
  - Night sweats [None]
  - Urticaria [None]
  - Oxygen saturation decreased [None]
  - Rash [None]
  - Chills [None]
  - Pyrexia [None]
  - Dizziness [None]

NARRATIVE: CASE EVENT DATE: 20161118
